FAERS Safety Report 7114314-8 (Version None)
Quarter: 2010Q4

REPORT INFORMATION
  Report Type: 
  Country: None (occurrence: None)
  Receive Date: 20101119
  Receipt Date: 20101114
  Transmission Date: 20110411
  Serious: Yes (Other)
  Sender: FDA-Public Use
  Company Number: SE-PFIZER INC-2010147974

PATIENT
  Sex: Female

DRUGS (2)
  1. CELEBRA [Suspect]
     Dosage: UNK
     Dates: start: 20101001
  2. DOLCONTIN [Suspect]
     Dosage: UNK
     Dates: start: 20101001

REACTIONS (3)
  - DIPLOPIA [None]
  - REFRACTION DISORDER [None]
  - VISION BLURRED [None]
